FAERS Safety Report 10215780 (Version 2)
Quarter: 2014Q3

REPORT INFORMATION
  Report Type: Report from Study
  Country: BR (occurrence: BR)
  Receive Date: 20140604
  Receipt Date: 20140730
  Transmission Date: 20150326
  Serious: Yes (Hospitalization, Other)
  Sender: FDA-Public Use
  Company Number: PHHY2014BR063542

PATIENT
  Sex: Male
  Weight: 75 kg

DRUGS (9)
  1. EXFORGE HCT [Suspect]
     Active Substance: AMLODIPINE BESYLATE\HYDROCHLOROTHIAZIDE\VALSARTAN
     Indication: HYPERTENSION
     Dosage: 1 DF, IN THE MORNING (160/5/12.5 MG)
     Route: 048
  2. BETADINE [Concomitant]
     Active Substance: POVIDONE-IODINE
     Indication: LABYRINTHITIS
     Dosage: 24 MG, UNK
  3. XARELTO [Concomitant]
     Active Substance: RIVAROXABAN
     Indication: ANTICOAGULANT THERAPY
     Dosage: 20 MG, UNK
  4. VALIUM [Concomitant]
     Active Substance: DIAZEPAM
     Dosage: 0.5 DF
  5. VALIUM [Concomitant]
     Active Substance: DIAZEPAM
     Dosage: 5 MG, UNK
  6. EXFORGE HCT [Suspect]
     Active Substance: AMLODIPINE BESYLATE\HYDROCHLOROTHIAZIDE\VALSARTAN
     Dosage: 1 DF, IN THE MORNING (160/5/1.5 MG)
     Route: 048
  7. METOPROLOL [Concomitant]
     Active Substance: METOPROLOL
     Indication: CARDIAC FIBRILLATION
     Dosage: 100 MG, UNK
  8. VALIUM [Concomitant]
     Active Substance: DIAZEPAM
     Indication: RELAXATION THERAPY
     Dosage: 5 MG, UNK
  9. CITALOPRAM [Concomitant]
     Active Substance: CITALOPRAM HYDROBROMIDE
     Indication: VOMITING
     Dosage: 20 MG, UNK

REACTIONS (3)
  - Memory impairment [Recovering/Resolving]
  - Blood pressure increased [Recovering/Resolving]
  - Hypotension [Recovering/Resolving]
